FAERS Safety Report 18094671 (Version 1)
Quarter: 2020Q3

REPORT INFORMATION
  Report Type: Spontaneous
  Country: US (occurrence: US)
  Receive Date: 20200731
  Receipt Date: 20200731
  Transmission Date: 20201103
  Serious: Yes (Other)
  Sender: FDA-Public Use
  Company Number: US-TEVA-2020-US-1806957

PATIENT
  Age: 72 Year
  Sex: Female

DRUGS (1)
  1. CARISOPRODOL. [Suspect]
     Active Substance: CARISOPRODOL
     Dosage: TAKING THEM FOR A LONG TIME
     Route: 065
     Dates: end: 20200720

REACTIONS (4)
  - Inappropriate schedule of product administration [Unknown]
  - Neuropathy peripheral [Unknown]
  - Anxiety [Not Recovered/Not Resolved]
  - Drug dependence [Unknown]

NARRATIVE: CASE EVENT DATE: 202007
